FAERS Safety Report 13062110 (Version 1)
Quarter: 2016Q4

REPORT INFORMATION
  Report Type: Spontaneous
  Country: US (occurrence: US)
  Receive Date: 20161226
  Receipt Date: 20161226
  Transmission Date: 20170207
  Serious: Yes (Other)
  Sender: FDA-Public Use
  Company Number: PHEH2016US033253

PATIENT
  Age: 74 Year
  Sex: Female
  Weight: 63.5 kg

DRUGS (7)
  1. PALBOCICLIB [Suspect]
     Active Substance: PALBOCICLIB
     Dosage: 100 MG, UNK
     Route: 048
  2. ATENOLOL. [Concomitant]
     Active Substance: ATENOLOL
     Indication: CARDIAC DISORDER
     Dosage: 25 MG, QD
     Route: 065
     Dates: start: 2000
  3. LETROZOLE. [Suspect]
     Active Substance: LETROZOLE
     Indication: BREAST CANCER RECURRENT
     Dosage: 2.5 MG, QD (DAILY)
     Route: 065
  4. PALBOCICLIB [Suspect]
     Active Substance: PALBOCICLIB
     Dosage: 75 MG, QD (DAILY)
     Route: 048
     Dates: start: 201606
  5. AMLOD [Concomitant]
     Active Substance: AMLODIPINE BESYLATE
     Indication: CARDIAC DISORDER
     Dosage: 20 MG, QD (10/20 MG ONCE DAILY)
     Route: 065
     Dates: start: 2000
  6. ASPIRIN. [Concomitant]
     Active Substance: ASPIRIN
     Indication: CARDIAC DISORDER
     Dosage: 325 MG, QD (DAILY)
     Route: 065
     Dates: start: 2000
  7. PALBOCICLIB [Suspect]
     Active Substance: PALBOCICLIB
     Indication: BREAST CANCER RECURRENT
     Dosage: 125 MG, UNK
     Route: 048

REACTIONS (13)
  - Malignant neoplasm progression [Unknown]
  - Nausea [Unknown]
  - Breast cancer recurrent [Unknown]
  - Metastases to chest wall [Unknown]
  - Fatigue [Not Recovered/Not Resolved]
  - Drug intolerance [Unknown]
  - Nasopharyngitis [Recovering/Resolving]
  - Eating disorder [Unknown]
  - Dizziness [Unknown]
  - Breast cancer [Unknown]
  - Somnolence [Unknown]
  - White blood cell count decreased [Unknown]
  - Weight decreased [Unknown]

NARRATIVE: CASE EVENT DATE: 20161203
